FAERS Safety Report 22102934 (Version 5)
Quarter: 2024Q4

REPORT INFORMATION
  Report Type: Spontaneous
  Country: US (occurrence: US)
  Receive Date: 20230316
  Receipt Date: 20241115
  Transmission Date: 20250115
  Serious: Yes (Other)
  Sender: PFIZER
  Company Number: US-PFIZER INC-PV202300048966

PATIENT
  Age: 82 Year
  Sex: Female
  Weight: 68.04 kg

DRUGS (2)
  1. VYNDAMAX [Suspect]
     Active Substance: TAFAMIDIS
     Indication: Acquired ATTR amyloidosis
     Dosage: TAKE 61 MG BY MOUTH 1 (ONE) TIME EACH DAY
     Route: 048
  2. LISINOPRIL [Concomitant]
     Active Substance: LISINOPRIL
     Indication: Blood pressure abnormal
     Dosage: 5 MG, 1X/DAY

REACTIONS (5)
  - Cardiac failure [Unknown]
  - Nasopharyngitis [Unknown]
  - Dysphonia [Unknown]
  - Hypoacusis [Unknown]
  - Confusional state [Unknown]

NARRATIVE: CASE EVENT DATE: 20230301
